FAERS Safety Report 9566475 (Version 2)
Quarter: 2013Q4

REPORT INFORMATION
  Report Type: Spontaneous
  Country: US (occurrence: US)
  Receive Date: 20130930
  Receipt Date: 20131009
  Transmission Date: 20140711
  Serious: No
  Sender: FDA-Public Use
  Company Number: US-BAXTER-2013BAX037129

PATIENT
  Sex: Female
  Weight: 68 kg

DRUGS (5)
  1. GAMMAGARD LIQUID [Suspect]
     Indication: IMMUNODEFICIENCY COMMON VARIABLE
     Route: 042
     Dates: start: 201210
  2. 5% DEXTROSE INJECTION USP [Suspect]
     Indication: CATHETER MANAGEMENT
     Dosage: 3-5 ML
     Route: 042
     Dates: start: 201210
  3. 5% DEXTROSE INJECTION USP [Suspect]
     Indication: CATHETER MANAGEMENT
  4. DIPHENHYDRAMINE [Concomitant]
     Indication: PREMEDICATION
     Dosage: 25-50 MG
     Route: 048
  5. TYLENOL [Concomitant]
     Indication: PREMEDICATION
     Dosage: 325-650 MG
     Route: 048

REACTIONS (3)
  - Chills [Recovered/Resolved]
  - Tremor [Recovered/Resolved]
  - Blood pressure increased [Unknown]
